FAERS Safety Report 19032449 (Version 4)
Quarter: 2022Q2

REPORT INFORMATION
  Report Type: Report from Study
  Country: AR (occurrence: AR)
  Receive Date: 20210319
  Receipt Date: 20220503
  Transmission Date: 20220721
  Serious: Yes (Other)
  Sender: FDA-Public Use
  Company Number: NVSC2020AR301077

PATIENT
  Age: 8 Year
  Sex: Female

DRUGS (3)
  1. OMNITROPE [Suspect]
     Active Substance: SOMATROPIN
     Indication: Growth hormone deficiency
     Dosage: 0.8 MG, QD (6 MONTHS AGO)
     Route: 058
     Dates: start: 20191009, end: 20191009
  2. OMNITROPE [Suspect]
     Active Substance: SOMATROPIN
     Dosage: 1 MG, QD
     Route: 058
     Dates: start: 20191009
  3. OMNITROPE [Suspect]
     Active Substance: SOMATROPIN
     Dosage: 1 MG, QD
     Route: 058
     Dates: start: 20210305

REACTIONS (10)
  - Growth failure [Unknown]
  - Weight gain poor [Not Recovered/Not Resolved]
  - Injection site pain [Unknown]
  - Tremor [Unknown]
  - Injection site bruising [Unknown]
  - Injection site swelling [Unknown]
  - Reading disorder [Unknown]
  - Urinary incontinence [Unknown]
  - Decreased appetite [Unknown]
  - Expired product administered [Unknown]

NARRATIVE: CASE EVENT DATE: 20201025
